FAERS Safety Report 9265472 (Version 6)
Quarter: 2015Q2

REPORT INFORMATION
  Report Type: Spontaneous
  Country: US (occurrence: US)
  Receive Date: 20130501
  Receipt Date: 20150605
  Transmission Date: 20150821
  Serious: Yes (Hospitalization, Other)
  Sender: FDA-Public Use
  Company Number: US-009507513-1304USA015563

PATIENT
  Sex: Male

DRUGS (2)
  1. FINASTERIDE. [Suspect]
     Active Substance: FINASTERIDE
     Dosage: 1 MG, QD
     Route: 048
  2. PROPECIA [Suspect]
     Active Substance: FINASTERIDE
     Indication: ALOPECIA
     Dosage: UNK
     Route: 048
     Dates: start: 20040316, end: 200607

REACTIONS (37)
  - Varicocele [Unknown]
  - Testicular atrophy [Unknown]
  - Depression [Not Recovered/Not Resolved]
  - Alcohol poisoning [Unknown]
  - Alcohol withdrawal syndrome [Unknown]
  - Emotional disorder [Unknown]
  - Alcohol abuse [Unknown]
  - Blood insulin decreased [Unknown]
  - Infertility [Not Recovered/Not Resolved]
  - Ileus [Unknown]
  - Pancreatitis chronic [Unknown]
  - Nervousness [Unknown]
  - Spermatozoa abnormal [Unknown]
  - Constipation [Unknown]
  - Delirium tremens [Recovering/Resolving]
  - Scrotal varicose veins [Unknown]
  - Cardiac disorder [Unknown]
  - Mental disorder [Unknown]
  - Organic erectile dysfunction [Not Recovered/Not Resolved]
  - Vision blurred [Not Recovered/Not Resolved]
  - Semen volume decreased [Not Recovered/Not Resolved]
  - Abdominal pain [Unknown]
  - Intentional overdose [Unknown]
  - Sleep disorder [Unknown]
  - Sexual dysfunction [Not Recovered/Not Resolved]
  - Suicidal ideation [Unknown]
  - Dyspepsia [Unknown]
  - Weight decreased [Unknown]
  - Musculoskeletal pain [Unknown]
  - Anxiety [Not Recovered/Not Resolved]
  - Conjunctivitis allergic [Unknown]
  - Lipoma [Unknown]
  - Visual acuity reduced [Unknown]
  - Pancreaticoduodenectomy [Unknown]
  - Type 1 diabetes mellitus [Unknown]
  - Retrograde ejaculation [Unknown]
  - Pain in extremity [Unknown]

NARRATIVE: CASE EVENT DATE: 20040511
